FAERS Safety Report 4476777-6 (Version None)
Quarter: 2004Q4

REPORT INFORMATION
  Report Type: 
  Country: None (occurrence: None)
  Receive Date: 20041015
  Receipt Date: 20041015
  Transmission Date: 20050328
  Serious: Yes (Life-Threatening, Hospitalization, Disabling, Other)
  Sender: FDA-Public Use
  Company Number: None

PATIENT
  Age: 92 Year
  Sex: Female
  Weight: 56.6996 kg

DRUGS (9)
  1. DURAGESIC [Suspect]
     Indication: COMPRESSION FRACTURE
     Dosage: 25 MCG/HOUR   EVERY 72 HOURS   TRANSDERMAL
     Route: 062
     Dates: start: 20040810, end: 20040817
  2. DURAGESIC [Suspect]
     Indication: STRESS FRACTURE
     Dosage: 25 MCG/HOUR   EVERY 72 HOURS   TRANSDERMAL
     Route: 062
     Dates: start: 20040810, end: 20040817
  3. DARVOCET-N 100 [Concomitant]
  4. XANAX [Concomitant]
  5. SEPTRA DS [Concomitant]
  6. PHERNEGAN [Concomitant]
  7. DICLOFENAC [Concomitant]
  8. OSCAL WITH VITAMIN D [Concomitant]
  9. CARTIA XT [Concomitant]

REACTIONS (1)
  - MEDICATION ERROR [None]
